FAERS Safety Report 14121273 (Version 1)
Quarter: 2017Q4

REPORT INFORMATION
  Report Type: Spontaneous
  Country: US (occurrence: US)
  Receive Date: 20171024
  Receipt Date: 20171024
  Transmission Date: 20180321
  Serious: No
  Sender: FDA-Public Use
  Company Number: US-MYLANLABS-2017M1056518

PATIENT
  Sex: Female

DRUGS (1)
  1. PERFOROMIST [Suspect]
     Active Substance: FORMOTEROL FUMARATE DIHYDRATE
     Indication: DYSPNOEA
     Dosage: 20 ?G, BID
     Dates: end: 201708

REACTIONS (1)
  - Abdominal discomfort [Recovered/Resolved]
